FAERS Safety Report 6092535-3 (Version None)
Quarter: 2009Q1

REPORT INFORMATION
  Report Type: 
  Country: None (occurrence: None)
  Receive Date: 20090225
  Receipt Date: 20070531
  Transmission Date: 20090719
  Serious: Yes (Hospitalization)
  Sender: FDA-Public Use
  Company Number: FR-PFIZER INC-2009161121

PATIENT

DRUGS (14)
  1. EPIRUBICIN HCL [Suspect]
     Indication: GASTRIC CANCER
     Dosage: CYCLIC
  2. CISPLATIN [Suspect]
     Indication: GASTRIC CANCER
     Dosage: CYCLIC
  3. CAPECITABINE [Suspect]
     Indication: GASTRIC CANCER
     Dosage: CYCLIC
  4. DURAGESIC-100 [Concomitant]
     Indication: ABDOMINAL PAIN
     Dosage: 25 UG/ 72 H
     Route: 058
     Dates: start: 20060410
  5. NEXIUM [Concomitant]
     Indication: ABDOMINAL PAIN UPPER
     Dosage: 40 MG
     Route: 048
     Dates: start: 20060316, end: 20060713
  6. SANDOSTATIN [Concomitant]
     Indication: METASTATIC NEOPLASM
     Dosage: 600 UG
     Route: 042
     Dates: start: 20060511
  7. SANDOSTATIN [Concomitant]
     Dosage: 30 MG
     Route: 030
     Dates: start: 20060511
  8. SOLUPRED [Concomitant]
     Indication: METASTATIC NEOPLASM
     Dosage: UNK
     Route: 048
     Dates: start: 20060525, end: 20060619
  9. LEXOMIL [Concomitant]
     Indication: ANXIETY
     Dosage: AS NEEDED
     Route: 048
     Dates: start: 20060309
  10. TRAMADOL HCL [Concomitant]
     Indication: ABDOMINAL PAIN
     Dosage: AS NEEDED
     Route: 048
     Dates: start: 20060511
  11. ACTISKENAN [Concomitant]
     Indication: ABDOMINAL PAIN
     Dosage: 80 MG
     Route: 048
     Dates: start: 20060309
  12. MUCOMYST [Concomitant]
     Indication: PRODUCTIVE COUGH
     Dosage: UNK
     Route: 048
     Dates: start: 20060615, end: 20060621
  13. SOLU-MEDROL [Concomitant]
     Indication: METASTATIC NEOPLASM
     Dosage: 100 MG
     Route: 042
     Dates: start: 20060619
  14. IMOVANE [Concomitant]
     Indication: INSOMNIA
     Dosage: 75 MG
     Route: 048
     Dates: start: 20060619, end: 20060619

REACTIONS (2)
  - ASTHENIA [None]
  - DEHYDRATION [None]
